FAERS Safety Report 5327754-4 (Version None)
Quarter: 2007Q2

REPORT INFORMATION
  Report Type: 
  Country: None (occurrence: None)
  Receive Date: 20070517
  Receipt Date: 20070510
  Transmission Date: 20071010
  Serious: Yes (Other)
  Sender: FDA-Public Use
  Company Number: GB-ALLERGAN-0705049US

PATIENT
  Sex: Female

DRUGS (1)
  1. DYSPORT [Suspect]
     Indication: MULTIPLE SCLEROSIS
     Dosage: 1500 UNITS, UNK
     Route: 030

REACTIONS (4)
  - ASTHENIA [None]
  - DYSPHONIA [None]
  - SENSATION OF FOREIGN BODY [None]
  - URINARY TRACT INFECTION [None]
